FAERS Safety Report 13138577 (Version 1)
Quarter: 2017Q1

REPORT INFORMATION
  Report Type: Spontaneous
  Country: US (occurrence: US)
  Receive Date: 20170123
  Receipt Date: 20170123
  Transmission Date: 20170428
  Serious: No
  Sender: FDA-Public Use
  Company Number: US-UNITED THERAPEUTICS-UNT-2016-012858

PATIENT
  Age: 67 Year
  Sex: Female
  Weight: 51.25 kg

DRUGS (3)
  1. REMODULIN [Suspect]
     Active Substance: TREPROSTINIL
     Indication: PULMONARY HYPERTENSION
     Dosage: 0.094 ?G/KG, CONTINUING
     Route: 058
     Dates: start: 20140912
  2. SILDENAFIL. [Concomitant]
     Active Substance: SILDENAFIL
     Indication: PRODUCT USED FOR UNKNOWN INDICATION
  3. LETAIRIS [Suspect]
     Active Substance: AMBRISENTAN
     Indication: PRODUCT USED FOR UNKNOWN INDICATION
     Dosage: 10 MG, QD
     Route: 065
     Dates: start: 20130924

REACTIONS (6)
  - Infusion site pain [Unknown]
  - Device issue [Unknown]
  - Infusion site erythema [Unknown]
  - Infusion site pustule [Unknown]
  - Infusion site oedema [Unknown]
  - Infusion site discharge [Unknown]

NARRATIVE: CASE EVENT DATE: 201608
